FAERS Safety Report 12598408 (Version 3)
Quarter: 2016Q3

REPORT INFORMATION
  Report Type: Spontaneous
  Country: US (occurrence: US)
  Receive Date: 20160727
  Receipt Date: 20160808
  Transmission Date: 20161109
  Serious: No
  Sender: FDA-Public Use
  Company Number: US-BEH-2016062207

PATIENT
  Sex: Female
  Weight: 68 kg

DRUGS (32)
  1. EPIPEN [Concomitant]
     Active Substance: EPINEPHRINE
  2. NEUPOGEN [Concomitant]
     Active Substance: FILGRASTIM
  3. DIPHENHYDRAMINE. [Concomitant]
     Active Substance: DIPHENHYDRAMINE
  4. FLONASE [Concomitant]
     Active Substance: FLUTICASONE PROPIONATE
  5. SALINE [Concomitant]
     Active Substance: SODIUM CHLORIDE
  6. TYLENOL WITH CODEINE [Concomitant]
     Active Substance: ACETAMINOPHEN\CODEINE PHOSPHATE
  7. PLAQUENIL [Concomitant]
     Active Substance: HYDROXYCHLOROQUINE SULFATE
  8. GABAPENTIN. [Concomitant]
     Active Substance: GABAPENTIN
  9. SYMBICORT [Concomitant]
     Active Substance: BUDESONIDE\FORMOTEROL FUMARATE DIHYDRATE
  10. OMEPRAZOLE. [Concomitant]
     Active Substance: OMEPRAZOLE
  11. LIDOCAINE. [Concomitant]
     Active Substance: LIDOCAINE
  12. TEMOVATE [Concomitant]
     Active Substance: CLOBETASOL PROPIONATE
  13. LIPITOR [Concomitant]
     Active Substance: ATORVASTATIN CALCIUM
  14. HYZAAR [Concomitant]
     Active Substance: HYDROCHLOROTHIAZIDE\LOSARTAN POTASSIUM
  15. NASONEX [Concomitant]
     Active Substance: MOMETASONE FUROATE
  16. ONDANSETRON [Concomitant]
     Active Substance: ONDANSETRON
  17. BUPROPION. [Concomitant]
     Active Substance: BUPROPION
  18. SENNA [Concomitant]
     Active Substance: SENNA LEAF\SENNOSIDES\SENNOSIDES A AND B
  19. INVANZ [Concomitant]
     Active Substance: ERTAPENEM SODIUM
  20. MELATONIN [Concomitant]
     Active Substance: MELATONIN
  21. LEVOXYL [Concomitant]
     Active Substance: LEVOTHYROXINE SODIUM
  22. MULTIVITAMIN [Concomitant]
     Active Substance: VITAMINS
  23. HIZENTRA [Suspect]
     Active Substance: HUMAN IMMUNOGLOBULIN G
     Indication: IMMUNODEFICIENCY COMMON VARIABLE
     Dates: start: 20130917
  24. METOPROLOL. [Concomitant]
     Active Substance: METOPROLOL
  25. SINGULAIR [Concomitant]
     Active Substance: MONTELUKAST SODIUM
  26. ALBUTEROL. [Concomitant]
     Active Substance: ALBUTEROL
  27. LIDODERM [Concomitant]
     Active Substance: LIDOCAINE
  28. CLONIDINE. [Concomitant]
     Active Substance: CLONIDINE
  29. SALEX [Concomitant]
     Active Substance: SALICYLIC ACID
  30. CALCIUM [Concomitant]
     Active Substance: CALCIUM
  31. FLEXERIL [Concomitant]
     Active Substance: CYCLOBENZAPRINE HYDROCHLORIDE
  32. LORATADINE. [Concomitant]
     Active Substance: LORATADINE

REACTIONS (1)
  - Infection [Unknown]
